FAERS Safety Report 4533607-1 (Version None)
Quarter: 2004Q4

REPORT INFORMATION
  Report Type: 
  Country: None (occurrence: None)
  Receive Date: 20041210
  Receipt Date: 20031223
  Transmission Date: 20050328
  Serious: Yes (Death)
  Sender: FDA-Public Use
  Company Number: 03P-163-0245661-00

PATIENT

DRUGS (1)
  1. MERIDIA [Suspect]

REACTIONS (1)
  - DEATH [None]
